FAERS Safety Report 17761134 (Version 1)
Quarter: 2020Q2

REPORT INFORMATION
  Report Type: Report from Study
  Country: US (occurrence: US)
  Receive Date: 20200508
  Receipt Date: 20200508
  Transmission Date: 20200714
  Serious: Yes (Other)
  Sender: FDA-Public Use
  Company Number: US-JACOBUS PHARMACEUTICAL COMPANY, INC.-2083629

PATIENT
  Age: 66 Year
  Sex: Female

DRUGS (3)
  1. TACROLIMUS. [Suspect]
     Active Substance: TACROLIMUS
  2. DAPSONE. [Suspect]
     Active Substance: DAPSONE
  3. PROGRAF [Suspect]
     Active Substance: TACROLIMUS
     Dates: start: 20181208, end: 20190103

REACTIONS (3)
  - Blood potassium increased [None]
  - Chronic kidney disease [None]
  - Metabolic function test abnormal [None]
